FAERS Safety Report 5119560-0 (Version None)
Quarter: 2006Q4

REPORT INFORMATION
  Report Type: 
  Country: None (occurrence: None)
  Receive Date: 20061003
  Receipt Date: 20060208
  Transmission Date: 20070319
  Serious: Yes (Other)
  Sender: FDA-Public Use
  Company Number: DE-ROCHE-435460

PATIENT
  Age: 70 Year
  Sex: Male

DRUGS (1)
  1. TAMIFLU [Suspect]
     Indication: INFLUENZA
     Route: 048
     Dates: start: 20051211, end: 20051213

REACTIONS (4)
  - BLOOD BILIRUBIN INCREASED [None]
  - DISORIENTATION [None]
  - HALLUCINATION [None]
  - ILLUSION [None]
